FAERS Safety Report 17641405 (Version 1)
Quarter: 2020Q2

REPORT INFORMATION
  Report Type: Spontaneous
  Country: ES (occurrence: ES)
  Receive Date: 20200407
  Receipt Date: 20200407
  Transmission Date: 20200713
  Serious: Yes (Hospitalization, Other)
  Sender: FDA-Public Use
  Company Number: ES-PTC THERAPEUTICS, INC.-ES-2020PTC000188

PATIENT
  Age: 71 Year
  Sex: Male

DRUGS (2)
  1. CETIRIZINE [Concomitant]
     Active Substance: CETIRIZINE HYDROCHLORIDE
     Indication: PRODUCT USED FOR UNKNOWN INDICATION
     Dosage: UNK
  2. DEFLAZACORT [Suspect]
     Active Substance: DEFLAZACORT
     Indication: SKIN LESION
     Dosage: UNK

REACTIONS (2)
  - Varicella zoster pneumonia [Recovered/Resolved]
  - Off label use [Unknown]
